FAERS Safety Report 7397931-X (Version None)
Quarter: 2011Q2

REPORT INFORMATION
  Report Type: 
  Country: None (occurrence: None)
  Receive Date: 20110406
  Receipt Date: 20110325
  Transmission Date: 20111010
  Serious: Yes (Other)
  Sender: FDA-Public Use
  Company Number: US-BAYER-2011-028270

PATIENT
  Sex: Female

DRUGS (10)
  1. PROMETRIUM [Suspect]
     Dosage: UNK
     Dates: start: 19970101, end: 20070101
  2. AYGESTIN [Suspect]
     Dosage: UNK
     Dates: start: 19970101, end: 20070101
  3. CENESTIN [Suspect]
     Dosage: UNK
     Route: 048
     Dates: start: 19970101, end: 20070101
  4. PREMARIN [Suspect]
     Dosage: UNK
     Route: 048
     Dates: start: 19970101, end: 20070101
  5. AYGESTIN [Suspect]
  6. CLIMARA [Suspect]
     Dosage: UNK
     Route: 062
     Dates: start: 19970101, end: 20070101
  7. ESTRACE [Suspect]
     Dosage: UNK
     Dates: start: 19970101, end: 20070101
  8. ESTRADIOL [Suspect]
     Dosage: UNK
     Route: 048
     Dates: start: 19970101, end: 20070101
  9. ESTRADIOL [Suspect]
     Dosage: UNK
     Route: 062
     Dates: start: 19970101, end: 20070101
  10. PREMPHASE (PREMARIN;CYCRIN 14/14) [Suspect]
     Dosage: UNK
     Dates: start: 19970101, end: 20070101

REACTIONS (1)
  - BREAST CANCER [None]
